FAERS Safety Report 7385016-8 (Version None)
Quarter: 2011Q1

REPORT INFORMATION
  Report Type: 
  Country: None (occurrence: None)
  Receive Date: 20110330
  Receipt Date: 20110322
  Transmission Date: 20110831
  Serious: Yes (Life-Threatening, Hospitalization)
  Sender: FDA-Public Use
  Company Number: ES-BAYER-2011-025678

PATIENT
  Age: 80 Year
  Sex: Male

DRUGS (6)
  1. SPIRONOLACTONE [Interacting]
     Indication: HYPERTENSION
     Dosage: 100 MG, UNK
     Route: 048
     Dates: end: 20100206
  2. FUROSEMIDE [Interacting]
     Indication: HYPERTENSION
     Dosage: 40 MG, UNK
     Route: 048
     Dates: end: 20100206
  3. RIVOTRIL [Concomitant]
     Dosage: 1.5 MG, UNK
     Route: 048
     Dates: end: 20100206
  4. ELGAM [Concomitant]
     Indication: GASTRITIS PROPHYLAXIS
     Dosage: 20 MG, UNK
     Route: 048
     Dates: end: 20100206
  5. ASPIRIN [Suspect]
     Indication: ISCHAEMIC CARDIOMYOPATHY
     Dosage: 300 MG, UNK
     Route: 048
  6. ZYLORIC [Concomitant]
     Dosage: 100 MG, UNK
     Route: 048
     Dates: end: 20100206

REACTIONS (2)
  - RENAL FAILURE ACUTE [None]
  - HYPERKALAEMIA [None]
